FAERS Safety Report 17091528 (Version 3)
Quarter: 2019Q4

REPORT INFORMATION
  Report Type: Spontaneous
  Country: US (occurrence: US)
  Receive Date: 20191129
  Receipt Date: 20191213
  Transmission Date: 20200122
  Serious: Yes (Life-Threatening)
  Sender: FDA-Public Use
  Company Number: US-SUNOVION-2019SUN005134

PATIENT
  Sex: Male
  Weight: 117.91 kg

DRUGS (2)
  1. LATUDA [Suspect]
     Active Substance: LURASIDONE HYDROCHLORIDE
     Indication: SCHIZOPHRENIA
     Dosage: 60 MG QHS
     Route: 048
     Dates: start: 20181217, end: 20191119
  2. DEPAKOTE [Concomitant]
     Active Substance: DIVALPROEX SODIUM
     Indication: SCHIZOPHRENIA
     Dosage: UNK
     Dates: start: 20190822

REACTIONS (1)
  - Hypertriglyceridaemia [Not Recovered/Not Resolved]
